FAERS Safety Report 25068405 (Version 1)
Quarter: 2025Q1

REPORT INFORMATION
  Report Type: Spontaneous
  Country: US (occurrence: None)
  Receive Date: 20250311
  Receipt Date: 20250311
  Transmission Date: 20250409
  Serious: Yes (Other)
  Sender: FDA-CTU
  Company Number: None

PATIENT
  Age: 69 Year
  Sex: Female
  Weight: 92.7 kg

DRUGS (1)
  1. KISUNLA [Suspect]
     Active Substance: DONANEMAB-AZBT
     Dates: start: 20241119, end: 20250311

REACTIONS (10)
  - Infusion related reaction [None]
  - Feeling hot [None]
  - Erythema [None]
  - Dyspnoea [None]
  - Palpitations [None]
  - Blood pressure systolic increased [None]
  - Therapy interrupted [None]
  - Infusion site pain [None]
  - Headache [None]
  - Chills [None]

NARRATIVE: CASE EVENT DATE: 20250311
